FAERS Safety Report 7946950-0 (Version None)
Quarter: 2011Q4

REPORT INFORMATION
  Report Type: 
  Country: None (occurrence: None)
  Receive Date: 20111129
  Receipt Date: 20060912
  Transmission Date: 20120403
  Serious: Yes (Other)
  Sender: FDA-Public Use
  Company Number: PHHY2006AR009177

PATIENT
  Age: 87 Year
  Sex: Male

DRUGS (1)
  1. EXELON [Suspect]
     Dosage: 4.5 MG, UNK

REACTIONS (3)
  - RIB FRACTURE [None]
  - FALL [None]
  - NAUSEA [None]
